FAERS Safety Report 18273714 (Version 1)
Quarter: 2020Q3

REPORT INFORMATION
  Report Type: Spontaneous
  Country: NZ (occurrence: NZ)
  Receive Date: 20200916
  Receipt Date: 20200916
  Transmission Date: 20201103
  Serious: Yes (Hospitalization, Other)
  Sender: FDA-Public Use
  Company Number: NZ-ROCHE-2673869

PATIENT
  Age: 71 Year
  Sex: Female

DRUGS (2)
  1. COTELLIC [Suspect]
     Active Substance: COBIMETINIB
     Indication: MALIGNANT MELANOMA
     Dosage: MORNING DOSAGE 3 X COTELLIC
     Route: 065
     Dates: start: 20200820
  2. ZELBORAF [Suspect]
     Active Substance: VEMURAFENIB
     Indication: MALIGNANT MELANOMA
     Dosage: MORNING DOSAGE 4 X ZELBORAF, AFTERNOON DOSAGE 4 X ZELBORAF
     Route: 065
     Dates: start: 20200820

REACTIONS (4)
  - Ill-defined disorder [Unknown]
  - Fall [Recovering/Resolving]
  - Rash morbilliform [Recovering/Resolving]
  - Diarrhoea [Unknown]

NARRATIVE: CASE EVENT DATE: 20200828
